APPROVED DRUG PRODUCT: PROPOFOL
Active Ingredient: PROPOFOL
Strength: 10MG/ML
Dosage Form/Route: INJECTABLE;INJECTION
Application: A217945 | Product #001 | TE Code: AB
Applicant: NANJING KING FRIEND BIOCHEMICAL PHARMACEUTICAL CO LTD
Approved: Dec 2, 2025 | RLD: No | RS: No | Type: RX